FAERS Safety Report 15968437 (Version 1)
Quarter: 2019Q1

REPORT INFORMATION
  Report Type: Report from Study
  Country: JP (occurrence: JP)
  Receive Date: 20190215
  Receipt Date: 20190215
  Transmission Date: 20190418
  Serious: Yes (Death, Life-Threatening, Hospitalization)
  Sender: FDA-Public Use
  Company Number: JP-BAUSCH-BL-2015-018865

PATIENT
  Age: 32 Year
  Sex: Female
  Weight: 34 kg

DRUGS (244)
  1. UNASYN [Concomitant]
     Active Substance: AMPICILLIN SODIUM\SULBACTAM SODIUM
     Indication: PRODUCT USED FOR UNKNOWN INDICATION
     Route: 065
     Dates: start: 20140927, end: 20141005
  2. PRIMPERAN [Concomitant]
     Active Substance: METOCLOPRAMIDE HYDROCHLORIDE
     Indication: PRODUCT USED FOR UNKNOWN INDICATION
     Route: 050
     Dates: start: 20141113
  3. DAIKENCHUTO [Concomitant]
     Active Substance: HERBALS
     Route: 050
     Dates: start: 20161019, end: 20161124
  4. TOLEDOMIN [Concomitant]
     Active Substance: MILNACIPRAN HYDROCHLORIDE
     Indication: PRODUCT USED FOR UNKNOWN INDICATION
     Route: 050
     Dates: start: 20141119
  5. BIO-THREE [Concomitant]
     Active Substance: HERBALS
     Indication: PRODUCT USED FOR UNKNOWN INDICATION
     Route: 050
     Dates: start: 20141119, end: 20161027
  6. SHINLUCK [Concomitant]
     Active Substance: SODIUM PICOSULFATE
     Indication: PRODUCT USED FOR UNKNOWN INDICATION
     Route: 050
     Dates: start: 20141121, end: 20151227
  7. HORIZON [Concomitant]
     Active Substance: DIAZEPAM
     Route: 065
     Dates: start: 20170220
  8. PLEVITA [Concomitant]
     Route: 065
     Dates: start: 20160810, end: 20160811
  9. PLEVITA [Concomitant]
     Route: 065
     Dates: start: 20170217, end: 20170220
  10. PENLEIV [Concomitant]
     Indication: PRODUCT USED FOR UNKNOWN INDICATION
     Route: 065
     Dates: start: 20160806, end: 20160809
  11. PENLEIV [Concomitant]
     Route: 065
     Dates: start: 20161122, end: 20161128
  12. FULCALIQ [Concomitant]
     Active Substance: AMINO ACIDS\CARBOHYDRATES\ELECTROLYTES NOS\VITAMINS
     Route: 065
     Dates: start: 20161227, end: 20170102
  13. FULCALIQ [Concomitant]
     Active Substance: AMINO ACIDS\CARBOHYDRATES\ELECTROLYTES NOS\VITAMINS
     Route: 065
     Dates: start: 20170116, end: 20170119
  14. SOLDEM 3 [Concomitant]
     Route: 065
     Dates: start: 20160913, end: 20160916
  15. MEDLENIK [Concomitant]
     Active Substance: CUPRIC SULFATE\FERRIC CHLORIDE\MANGANESE CHLORIDE\POTASSIUM IODIDE\ZINC SULFATE
     Route: 065
     Dates: start: 20160917, end: 201609
  16. MEDLENIK [Concomitant]
     Active Substance: CUPRIC SULFATE\FERRIC CHLORIDE\MANGANESE CHLORIDE\POTASSIUM IODIDE\ZINC SULFATE
     Route: 065
     Dates: start: 20160924, end: 20161011
  17. MEDLENIK [Concomitant]
     Active Substance: CUPRIC SULFATE\FERRIC CHLORIDE\MANGANESE CHLORIDE\POTASSIUM IODIDE\ZINC SULFATE
     Route: 065
     Dates: start: 20170103, end: 20170109
  18. MEDLENIK [Concomitant]
     Active Substance: CUPRIC SULFATE\FERRIC CHLORIDE\MANGANESE CHLORIDE\POTASSIUM IODIDE\ZINC SULFATE
     Route: 065
     Dates: start: 20170116, end: 20170119
  19. INTRALIPOS [Concomitant]
     Active Substance: SOYBEAN OIL
     Indication: NUTRITIONAL SUPPLEMENTATION
     Route: 065
     Dates: start: 20160825
  20. INTRALIPOS [Concomitant]
     Active Substance: SOYBEAN OIL
     Route: 065
     Dates: start: 20161019
  21. INTRALIPOS [Concomitant]
     Active Substance: SOYBEAN OIL
     Route: 065
     Dates: start: 20161024
  22. INTRALIPOS [Concomitant]
     Active Substance: SOYBEAN OIL
     Route: 065
     Dates: start: 20161028
  23. INTRALIPOS [Concomitant]
     Active Substance: SOYBEAN OIL
     Route: 065
     Dates: start: 20161104
  24. INTRALIPOS [Concomitant]
     Active Substance: SOYBEAN OIL
     Route: 065
     Dates: start: 20161114
  25. INTRALIPOS [Concomitant]
     Active Substance: SOYBEAN OIL
     Route: 065
     Dates: start: 20161121
  26. INTRALIPOS [Concomitant]
     Active Substance: SOYBEAN OIL
     Route: 065
     Dates: start: 20161209
  27. INTRALIPOS [Concomitant]
     Active Substance: SOYBEAN OIL
     Route: 065
     Dates: start: 20161228
  28. INTRALIPOS [Concomitant]
     Active Substance: SOYBEAN OIL
     Route: 065
     Dates: start: 20170102
  29. INTRALIPOS [Concomitant]
     Active Substance: SOYBEAN OIL
     Route: 065
     Dates: start: 20170106
  30. INTRALIPOS [Concomitant]
     Active Substance: SOYBEAN OIL
     Route: 065
     Dates: start: 20170208
  31. INTRALIPOS [Concomitant]
     Active Substance: SOYBEAN OIL
     Route: 065
     Dates: start: 20170213
  32. FULCALIQ [Concomitant]
     Active Substance: AMINO ACIDS\CARBOHYDRATES\ELECTROLYTES NOS\VITAMINS
     Route: 065
     Dates: start: 20170207, end: 20170213
  33. SEISHOKU [Concomitant]
     Active Substance: SODIUM CHLORIDE
     Route: 065
     Dates: start: 20160929
  34. PANTETHINE [Concomitant]
     Active Substance: PANTETHINE
     Route: 065
     Dates: start: 20170110, end: 20170115
  35. PANTETHINE [Concomitant]
     Active Substance: PANTETHINE
     Route: 065
     Dates: start: 20170124, end: 20170130
  36. CHOREAZINE TABLETS 12.5MG (TETRABENAZINE) [Suspect]
     Active Substance: TETRABENAZINE
     Dosage: AFTER DINNER
     Route: 048
     Dates: start: 20160722
  37. HIRNAMIN [Concomitant]
     Active Substance: LEVOMEPROMAZINE
     Dosage: AS NECESSARY
     Route: 050
     Dates: start: 20160617
  38. PHYSIO 35 [Concomitant]
     Active Substance: ELECTROLYTES NOS
     Route: 065
     Dates: start: 20160806, end: 20160809
  39. PHYSIO 35 [Concomitant]
     Active Substance: ELECTROLYTES NOS
     Route: 065
     Dates: start: 20160812, end: 20160817
  40. PHYSIO 35 [Concomitant]
     Active Substance: ELECTROLYTES NOS
     Route: 065
     Dates: start: 20170216
  41. PENLEIV [Concomitant]
     Route: 065
     Dates: start: 20170124, end: 20170130
  42. FULCALIQ [Concomitant]
     Active Substance: AMINO ACIDS\CARBOHYDRATES\ELECTROLYTES NOS\VITAMINS
     Route: 065
     Dates: start: 20170131, end: 20170206
  43. MEDLENIK [Concomitant]
     Active Substance: CUPRIC SULFATE\FERRIC CHLORIDE\MANGANESE CHLORIDE\POTASSIUM IODIDE\ZINC SULFATE
     Indication: NUTRITIONAL SUPPLEMENTATION
     Route: 065
     Dates: start: 20160820, end: 20160823
  44. MEDLENIK [Concomitant]
     Active Substance: CUPRIC SULFATE\FERRIC CHLORIDE\MANGANESE CHLORIDE\POTASSIUM IODIDE\ZINC SULFATE
     Route: 065
     Dates: start: 20160824, end: 20160830
  45. MEDLENIK [Concomitant]
     Active Substance: CUPRIC SULFATE\FERRIC CHLORIDE\MANGANESE CHLORIDE\POTASSIUM IODIDE\ZINC SULFATE
     Route: 065
     Dates: start: 20160913, end: 20160916
  46. MEDLENIK [Concomitant]
     Active Substance: CUPRIC SULFATE\FERRIC CHLORIDE\MANGANESE CHLORIDE\POTASSIUM IODIDE\ZINC SULFATE
     Route: 065
     Dates: start: 20170131, end: 20170206
  47. INTRALIPOS [Concomitant]
     Active Substance: SOYBEAN OIL
     Route: 065
     Dates: start: 20160901
  48. INTRALIPOS [Concomitant]
     Active Substance: SOYBEAN OIL
     Route: 065
     Dates: start: 20160916
  49. INTRALIPOS [Concomitant]
     Active Substance: SOYBEAN OIL
     Route: 065
     Dates: start: 20160919
  50. INTRALIPOS [Concomitant]
     Active Substance: SOYBEAN OIL
     Route: 065
     Dates: start: 20160930
  51. INTRALIPOS [Concomitant]
     Active Substance: SOYBEAN OIL
     Route: 065
     Dates: start: 20161010
  52. INTRALIPOS [Concomitant]
     Active Substance: SOYBEAN OIL
     Route: 065
     Dates: start: 20161026
  53. INTRALIPOS [Concomitant]
     Active Substance: SOYBEAN OIL
     Route: 065
     Dates: start: 20170118
  54. INTRALIPOS [Concomitant]
     Active Substance: SOYBEAN OIL
     Route: 065
     Dates: start: 20170123
  55. INTRALIPOS [Concomitant]
     Active Substance: SOYBEAN OIL
     Route: 065
     Dates: start: 20170125
  56. INTRALIPOS [Concomitant]
     Active Substance: SOYBEAN OIL
     Route: 065
     Dates: start: 20170206
  57. INTRALIPOS [Concomitant]
     Active Substance: SOYBEAN OIL
     Route: 065
     Dates: start: 20170217
  58. FULCALIQ [Concomitant]
     Active Substance: AMINO ACIDS\CARBOHYDRATES\ELECTROLYTES NOS\VITAMINS
     Route: 065
     Dates: start: 20170221, end: 20170227
  59. SEISHOKU [Concomitant]
     Active Substance: SODIUM CHLORIDE
     Route: 065
     Dates: start: 20160928
  60. SEISHOKU [Concomitant]
     Active Substance: SODIUM CHLORIDE
     Route: 065
     Dates: start: 20170131, end: 20170206
  61. CHOREAZINE TABLETS 12.5MG [Suspect]
     Active Substance: TETRABENAZINE
     Indication: HUNTINGTON^S DISEASE
     Route: 048
     Dates: start: 20130524, end: 20130530
  62. CHOREAZINE TABLETS 12.5MG (TETRABENAZINE) [Suspect]
     Active Substance: TETRABENAZINE
     Route: 048
     Dates: start: 20130621, end: 20130704
  63. CHOREAZINE TABLETS 12.5MG (TETRABENAZINE) [Suspect]
     Active Substance: TETRABENAZINE
     Route: 048
     Dates: start: 20130705, end: 20130717
  64. RIVOTRIL [Concomitant]
     Active Substance: CLONAZEPAM
     Indication: PRODUCT USED FOR UNKNOWN INDICATION
     Route: 048
     Dates: start: 20120316, end: 20141113
  65. PRIMPERAN [Concomitant]
     Active Substance: METOCLOPRAMIDE HYDROCHLORIDE
     Route: 050
     Dates: start: 20161124
  66. BIO-THREE [Concomitant]
     Active Substance: HERBALS
     Route: 050
     Dates: start: 20161027, end: 20161103
  67. HORIZON [Concomitant]
     Active Substance: DIAZEPAM
     Route: 065
     Dates: start: 20160929
  68. HORIZON [Concomitant]
     Active Substance: DIAZEPAM
     Route: 065
     Dates: start: 20170105
  69. HORIZON [Concomitant]
     Active Substance: DIAZEPAM
     Route: 065
     Dates: start: 20170116
  70. LACTEC-G [Concomitant]
     Route: 065
     Dates: start: 20170216
  71. PHYSIO 35 [Concomitant]
     Active Substance: ELECTROLYTES NOS
     Route: 065
     Dates: start: 201608, end: 20160819
  72. PLEVITA [Concomitant]
     Indication: PRODUCT USED FOR UNKNOWN INDICATION
     Route: 065
     Dates: start: 20160806, end: 20160809
  73. PENLEIV [Concomitant]
     Route: 065
     Dates: start: 20160908, end: 20160912
  74. PENLEIV [Concomitant]
     Route: 065
     Dates: start: 20170207, end: 20170213
  75. FULCALIQ [Concomitant]
     Active Substance: AMINO ACIDS\CARBOHYDRATES\ELECTROLYTES NOS\VITAMINS
     Route: 065
     Dates: start: 20161018, end: 20161024
  76. MEDLENIK [Concomitant]
     Active Substance: CUPRIC SULFATE\FERRIC CHLORIDE\MANGANESE CHLORIDE\POTASSIUM IODIDE\ZINC SULFATE
     Route: 065
     Dates: start: 20161101, end: 20161107
  77. MEDLENIK [Concomitant]
     Active Substance: CUPRIC SULFATE\FERRIC CHLORIDE\MANGANESE CHLORIDE\POTASSIUM IODIDE\ZINC SULFATE
     Route: 065
     Dates: start: 20161206, end: 20161212
  78. INTRALIPOS [Concomitant]
     Active Substance: SOYBEAN OIL
     Route: 065
     Dates: start: 20160914
  79. INTRALIPOS [Concomitant]
     Active Substance: SOYBEAN OIL
     Route: 065
     Dates: start: 20161031
  80. INTRALIPOS [Concomitant]
     Active Substance: SOYBEAN OIL
     Route: 065
     Dates: start: 20161107
  81. INTRALIPOS [Concomitant]
     Active Substance: SOYBEAN OIL
     Route: 065
     Dates: start: 20161118
  82. INTRALIPOS [Concomitant]
     Active Substance: SOYBEAN OIL
     Route: 065
     Dates: start: 20161123
  83. INTRALIPOS [Concomitant]
     Active Substance: SOYBEAN OIL
     Route: 065
     Dates: start: 20161128
  84. INTRALIPOS [Concomitant]
     Active Substance: SOYBEAN OIL
     Route: 065
     Dates: start: 20161212
  85. INTRALIPOS [Concomitant]
     Active Substance: SOYBEAN OIL
     Route: 065
     Dates: start: 20161226
  86. INTRALIPOS [Concomitant]
     Active Substance: SOYBEAN OIL
     Route: 065
     Dates: start: 20170130
  87. INTRALIPOS [Concomitant]
     Active Substance: SOYBEAN OIL
     Route: 065
     Dates: start: 20170215
  88. FULCALIQ [Concomitant]
     Active Substance: AMINO ACIDS\CARBOHYDRATES\ELECTROLYTES NOS\VITAMINS
     Indication: PRODUCT USED FOR UNKNOWN INDICATION
     Route: 065
     Dates: start: 20160831, end: 20160907
  89. SEISHOKU [Concomitant]
     Active Substance: SODIUM CHLORIDE
     Route: 065
     Dates: start: 20161004, end: 20161008
  90. SEISHOKU [Concomitant]
     Active Substance: SODIUM CHLORIDE
     Route: 065
     Dates: start: 20161227, end: 20170102
  91. SEISHOKU [Concomitant]
     Active Substance: SODIUM CHLORIDE
     Route: 065
     Dates: start: 20170103, end: 20170109
  92. SEISHOKU [Concomitant]
     Active Substance: SODIUM CHLORIDE
     Route: 065
     Dates: start: 20170120, end: 20170123
  93. SEISHOKU [Concomitant]
     Active Substance: SODIUM CHLORIDE
     Route: 065
     Dates: start: 20170207, end: 20170213
  94. PANTETHINE [Concomitant]
     Active Substance: PANTETHINE
     Route: 065
     Dates: start: 20161219, end: 20161226
  95. PANTETHINE [Concomitant]
     Active Substance: PANTETHINE
     Route: 065
     Dates: start: 20161227, end: 20170102
  96. PANTETHINE [Concomitant]
     Active Substance: PANTETHINE
     Route: 065
     Dates: start: 20170103, end: 20170109
  97. PANTETHINE [Concomitant]
     Active Substance: PANTETHINE
     Route: 065
     Dates: start: 20170217, end: 20170220
  98. CHOREAZINE TABLETS 12.5MG (TETRABENAZINE) [Suspect]
     Active Substance: TETRABENAZINE
     Route: 048
     Dates: start: 20130718, end: 20130801
  99. CHOREAZINE TABLETS 12.5MG (TETRABENAZINE) [Suspect]
     Active Substance: TETRABENAZINE
     Route: 048
     Dates: start: 20141119, end: 20160721
  100. CEFMETAZOLE SODIUM [Suspect]
     Active Substance: CEFMETAZOLE SODIUM
     Indication: URINARY TRACT INFECTION
     Route: 065
     Dates: start: 20150517, end: 20150517
  101. RIVOTRIL [Concomitant]
     Active Substance: CLONAZEPAM
     Route: 050
     Dates: start: 20141119
  102. HIRNAMIN [Concomitant]
     Active Substance: LEVOMEPROMAZINE
     Dosage: DOSE INCREASED
     Route: 050
     Dates: start: 20140414
  103. HIRNAMIN [Concomitant]
     Active Substance: LEVOMEPROMAZINE
     Dosage: AS NECESSARY
     Route: 050
     Dates: start: 20160704
  104. PHYSIO 35 [Concomitant]
     Active Substance: ELECTROLYTES NOS
     Route: 065
     Dates: start: 20160908, end: 20160912
  105. PENLEIV [Concomitant]
     Route: 065
     Dates: start: 20161012, end: 20161017
  106. PENLEIV [Concomitant]
     Route: 065
     Dates: start: 20161206, end: 20161212
  107. PENLEIV [Concomitant]
     Route: 065
     Dates: start: 20161220, end: 20161226
  108. FULCALIQ [Concomitant]
     Active Substance: AMINO ACIDS\CARBOHYDRATES\ELECTROLYTES NOS\VITAMINS
     Indication: NUTRITIONAL SUPPLEMENTATION
     Route: 065
     Dates: start: 20160820, end: 20160823
  109. FULCALIQ [Concomitant]
     Active Substance: AMINO ACIDS\CARBOHYDRATES\ELECTROLYTES NOS\VITAMINS
     Route: 065
     Dates: start: 20160824, end: 20160830
  110. FULCALIQ [Concomitant]
     Active Substance: AMINO ACIDS\CARBOHYDRATES\ELECTROLYTES NOS\VITAMINS
     Route: 065
     Dates: start: 20161129, end: 20161205
  111. FULCALIQ [Concomitant]
     Active Substance: AMINO ACIDS\CARBOHYDRATES\ELECTROLYTES NOS\VITAMINS
     Route: 065
     Dates: start: 20170120, end: 20170123
  112. FULCALIQ [Concomitant]
     Active Substance: AMINO ACIDS\CARBOHYDRATES\ELECTROLYTES NOS\VITAMINS
     Route: 065
     Dates: start: 20170214, end: 20170215
  113. MEDLENIK [Concomitant]
     Active Substance: CUPRIC SULFATE\FERRIC CHLORIDE\MANGANESE CHLORIDE\POTASSIUM IODIDE\ZINC SULFATE
     Route: 065
     Dates: start: 20161122, end: 20161128
  114. MEDLENIK [Concomitant]
     Active Substance: CUPRIC SULFATE\FERRIC CHLORIDE\MANGANESE CHLORIDE\POTASSIUM IODIDE\ZINC SULFATE
     Route: 065
     Dates: start: 20161220, end: 20161226
  115. MEDLENIK [Concomitant]
     Active Substance: CUPRIC SULFATE\FERRIC CHLORIDE\MANGANESE CHLORIDE\POTASSIUM IODIDE\ZINC SULFATE
     Route: 065
     Dates: start: 20170120, end: 20170123
  116. MEDLENIK [Concomitant]
     Active Substance: CUPRIC SULFATE\FERRIC CHLORIDE\MANGANESE CHLORIDE\POTASSIUM IODIDE\ZINC SULFATE
     Route: 065
     Dates: start: 20170214, end: 20170215
  117. INTRALIPOS [Concomitant]
     Active Substance: SOYBEAN OIL
     Route: 065
     Dates: start: 20160921
  118. INTRALIPOS [Concomitant]
     Active Substance: SOYBEAN OIL
     Route: 065
     Dates: start: 20160923
  119. INTRALIPOS [Concomitant]
     Active Substance: SOYBEAN OIL
     Route: 065
     Dates: start: 20160928
  120. INTRALIPOS [Concomitant]
     Active Substance: SOYBEAN OIL
     Route: 065
     Dates: start: 20161021
  121. INTRALIPOS [Concomitant]
     Active Substance: SOYBEAN OIL
     Route: 065
     Dates: start: 20161125
  122. INTRALIPOS [Concomitant]
     Active Substance: SOYBEAN OIL
     Route: 065
     Dates: start: 20161219
  123. INTRALIPOS [Concomitant]
     Active Substance: SOYBEAN OIL
     Route: 065
     Dates: start: 20170111
  124. INTRALIPOS [Concomitant]
     Active Substance: SOYBEAN OIL
     Route: 065
     Dates: start: 20170120
  125. INTRALIPOS [Concomitant]
     Active Substance: SOYBEAN OIL
     Route: 065
     Dates: start: 20170220
  126. INTRALIPOS [Concomitant]
     Active Substance: SOYBEAN OIL
     Route: 065
     Dates: start: 20170224
  127. SEISHOKU [Concomitant]
     Active Substance: SODIUM CHLORIDE
     Route: 065
     Dates: start: 20170220
  128. PANTETHINE [Concomitant]
     Active Substance: PANTETHINE
     Indication: PRODUCT USED FOR UNKNOWN INDICATION
     Route: 065
     Dates: start: 20161207, end: 20161218
  129. PANTETHINE [Concomitant]
     Active Substance: PANTETHINE
     Route: 065
     Dates: start: 20170131, end: 20170206
  130. CHOREAZINE TABLETS 12.5MG (TETRABENAZINE) [Suspect]
     Active Substance: TETRABENAZINE
     Route: 048
     Dates: start: 20130531, end: 20130620
  131. CHOREAZINE TABLETS 12.5MG (TETRABENAZINE) [Suspect]
     Active Substance: TETRABENAZINE
     Route: 048
     Dates: start: 20130802, end: 20141113
  132. CEFMETAZOLE SODIUM [Suspect]
     Active Substance: CEFMETAZOLE SODIUM
     Route: 065
     Dates: start: 20150616, end: 20150619
  133. ARTANE [Concomitant]
     Active Substance: TRIHEXYPHENIDYL HYDROCHLORIDE
     Indication: PRODUCT USED FOR UNKNOWN INDICATION
     Route: 050
     Dates: start: 20141113
  134. HORIZON [Concomitant]
     Active Substance: DIAZEPAM
     Route: 065
     Dates: start: 20160928
  135. PHYSIO 35 [Concomitant]
     Active Substance: ELECTROLYTES NOS
     Route: 065
     Dates: start: 20160810, end: 20160811
  136. PLEVITA [Concomitant]
     Route: 065
     Dates: start: 20170216
  137. PENLEIV [Concomitant]
     Route: 065
     Dates: start: 20160831, end: 20160907
  138. PENLEIV [Concomitant]
     Route: 065
     Dates: start: 20161108, end: 20161114
  139. PENLEIV [Concomitant]
     Route: 065
     Dates: start: 20170217, end: 20170220
  140. FULCALIQ [Concomitant]
     Active Substance: AMINO ACIDS\CARBOHYDRATES\ELECTROLYTES NOS\VITAMINS
     Route: 065
     Dates: start: 20161115, end: 20161121
  141. MEDLENIK [Concomitant]
     Active Substance: CUPRIC SULFATE\FERRIC CHLORIDE\MANGANESE CHLORIDE\POTASSIUM IODIDE\ZINC SULFATE
     Route: 065
     Dates: start: 20160831, end: 20160907
  142. MEDLENIK [Concomitant]
     Active Substance: CUPRIC SULFATE\FERRIC CHLORIDE\MANGANESE CHLORIDE\POTASSIUM IODIDE\ZINC SULFATE
     Route: 065
     Dates: start: 20161012, end: 20161017
  143. MEDLENIK [Concomitant]
     Active Substance: CUPRIC SULFATE\FERRIC CHLORIDE\MANGANESE CHLORIDE\POTASSIUM IODIDE\ZINC SULFATE
     Route: 065
     Dates: start: 20161108, end: 20161114
  144. MEDLENIK [Concomitant]
     Active Substance: CUPRIC SULFATE\FERRIC CHLORIDE\MANGANESE CHLORIDE\POTASSIUM IODIDE\ZINC SULFATE
     Route: 065
     Dates: start: 20161115, end: 20161121
  145. MEDLENIK [Concomitant]
     Active Substance: CUPRIC SULFATE\FERRIC CHLORIDE\MANGANESE CHLORIDE\POTASSIUM IODIDE\ZINC SULFATE
     Route: 065
     Dates: start: 20170221, end: 20170227
  146. INTRALIPOS [Concomitant]
     Active Substance: SOYBEAN OIL
     Route: 065
     Dates: start: 20160905
  147. INTRALIPOS [Concomitant]
     Active Substance: SOYBEAN OIL
     Route: 065
     Dates: start: 20160912
  148. INTRALIPOS [Concomitant]
     Active Substance: SOYBEAN OIL
     Route: 065
     Dates: start: 20161012
  149. INTRALIPOS [Concomitant]
     Active Substance: SOYBEAN OIL
     Route: 065
     Dates: start: 20161014
  150. INTRALIPOS [Concomitant]
     Active Substance: SOYBEAN OIL
     Route: 065
     Dates: start: 20161109
  151. INTRALIPOS [Concomitant]
     Active Substance: SOYBEAN OIL
     Route: 065
     Dates: start: 20161205
  152. FULCALIQ [Concomitant]
     Active Substance: AMINO ACIDS\CARBOHYDRATES\ELECTROLYTES NOS\VITAMINS
     Route: 065
     Dates: start: 20161012, end: 20161017
  153. FULCALIQ [Concomitant]
     Active Substance: AMINO ACIDS\CARBOHYDRATES\ELECTROLYTES NOS\VITAMINS
     Route: 065
     Dates: start: 20161025, end: 20161031
  154. FULCALIQ [Concomitant]
     Active Substance: AMINO ACIDS\CARBOHYDRATES\ELECTROLYTES NOS\VITAMINS
     Route: 065
     Dates: start: 20161108, end: 20161114
  155. FULCALIQ [Concomitant]
     Active Substance: AMINO ACIDS\CARBOHYDRATES\ELECTROLYTES NOS\VITAMINS
     Route: 065
     Dates: start: 20170103, end: 20170109
  156. SEISHOKU [Concomitant]
     Active Substance: SODIUM CHLORIDE
     Indication: PRODUCT USED FOR UNKNOWN INDICATION
     Route: 065
     Dates: start: 20160921
  157. SEISHOKU [Concomitant]
     Active Substance: SODIUM CHLORIDE
     Route: 065
     Dates: start: 20161209, end: 20161218
  158. SEISHOKU [Concomitant]
     Active Substance: SODIUM CHLORIDE
     Route: 065
     Dates: start: 20170217, end: 20170220
  159. PANTETHINE [Concomitant]
     Active Substance: PANTETHINE
     Route: 065
     Dates: start: 20170116, end: 20170119
  160. SEROQUEL [Concomitant]
     Active Substance: QUETIAPINE FUMARATE
     Indication: PRODUCT USED FOR UNKNOWN INDICATION
     Route: 050
     Dates: start: 20141113
  161. HIRNAMIN [Concomitant]
     Active Substance: LEVOMEPROMAZINE
     Indication: PRODUCT USED FOR UNKNOWN INDICATION
     Route: 050
     Dates: start: 20141202, end: 20150413
  162. HIRNAMIN [Concomitant]
     Active Substance: LEVOMEPROMAZINE
     Dosage: AS NECESSARY
     Route: 050
     Dates: start: 20160625
  163. LACTEC-G [Concomitant]
     Indication: PRODUCT USED FOR UNKNOWN INDICATION
     Route: 065
     Dates: start: 20160729, end: 20160802
  164. PHYSIO 35 [Concomitant]
     Active Substance: ELECTROLYTES NOS
     Route: 065
     Dates: start: 20170110, end: 20170115
  165. PENLEIV [Concomitant]
     Route: 065
     Dates: start: 20170221, end: 20170227
  166. FULCALIQ [Concomitant]
     Active Substance: AMINO ACIDS\CARBOHYDRATES\ELECTROLYTES NOS\VITAMINS
     Route: 065
     Dates: start: 20161101, end: 20161107
  167. MEDLENIK [Concomitant]
     Active Substance: CUPRIC SULFATE\FERRIC CHLORIDE\MANGANESE CHLORIDE\POTASSIUM IODIDE\ZINC SULFATE
     Route: 065
     Dates: start: 20161018, end: 20161024
  168. MEDLENIK [Concomitant]
     Active Substance: CUPRIC SULFATE\FERRIC CHLORIDE\MANGANESE CHLORIDE\POTASSIUM IODIDE\ZINC SULFATE
     Route: 065
     Dates: start: 20170207, end: 20170213
  169. INTRALIPOS [Concomitant]
     Active Substance: SOYBEAN OIL
     Route: 065
     Dates: start: 20160829
  170. INTRALIPOS [Concomitant]
     Active Substance: SOYBEAN OIL
     Route: 065
     Dates: start: 20160926
  171. INTRALIPOS [Concomitant]
     Active Substance: SOYBEAN OIL
     Route: 065
     Dates: start: 20161214
  172. INTRALIPOS [Concomitant]
     Active Substance: SOYBEAN OIL
     Route: 065
     Dates: start: 20161230
  173. INTRALIPOS [Concomitant]
     Active Substance: SOYBEAN OIL
     Route: 065
     Dates: start: 20170104
  174. INTRALIPOS [Concomitant]
     Active Substance: SOYBEAN OIL
     Route: 065
     Dates: start: 20170113
  175. INTRALIPOS [Concomitant]
     Active Substance: SOYBEAN OIL
     Route: 065
     Dates: start: 20170222
  176. SEISHOKU [Concomitant]
     Active Substance: SODIUM CHLORIDE
     Route: 065
     Dates: start: 20170110, end: 20170115
  177. SEISHOKU [Concomitant]
     Active Substance: SODIUM CHLORIDE
     Route: 065
     Dates: start: 20170221
  178. SEISHOKU [Concomitant]
     Active Substance: SODIUM CHLORIDE
     Route: 065
     Dates: start: 20170221, end: 20170227
  179. SEISHOKU [Concomitant]
     Active Substance: SODIUM CHLORIDE
     Route: 065
     Dates: start: 20170116, end: 20170119
  180. PANTETHINE [Concomitant]
     Active Substance: PANTETHINE
     Route: 065
     Dates: start: 20170120, end: 20170123
  181. PANTETHINE [Concomitant]
     Active Substance: PANTETHINE
     Route: 065
     Dates: start: 20170214, end: 20170216
  182. PANTETHINE [Concomitant]
     Active Substance: PANTETHINE
     Route: 065
     Dates: start: 20170221, end: 20170227
  183. SERENACE [Concomitant]
     Active Substance: HALOPERIDOL
     Indication: PRODUCT USED FOR UNKNOWN INDICATION
     Route: 048
     Dates: start: 20130308, end: 20141113
  184. GASCON [Concomitant]
     Active Substance: DIMETHICONE
     Indication: PRODUCT USED FOR UNKNOWN INDICATION
     Route: 050
     Dates: start: 20141113
  185. PHYSIO 35 [Concomitant]
     Active Substance: ELECTROLYTES NOS
     Indication: PRODUCT USED FOR UNKNOWN INDICATION
     Route: 065
     Dates: start: 20160802
  186. PHYSIO 35 [Concomitant]
     Active Substance: ELECTROLYTES NOS
     Route: 065
     Dates: start: 20170217, end: 20170220
  187. PLEVITA [Concomitant]
     Route: 065
     Dates: start: 20160817, end: 20160819
  188. PLEVITA [Concomitant]
     Route: 065
     Dates: start: 20160908, end: 20160912
  189. PENLEIV [Concomitant]
     Route: 065
     Dates: start: 20161025, end: 20161031
  190. PENLEIV [Concomitant]
     Route: 065
     Dates: start: 20170116, end: 20170119
  191. FULCALIQ [Concomitant]
     Active Substance: AMINO ACIDS\CARBOHYDRATES\ELECTROLYTES NOS\VITAMINS
     Route: 065
     Dates: start: 20160917, end: 201609
  192. FULCALIQ [Concomitant]
     Active Substance: AMINO ACIDS\CARBOHYDRATES\ELECTROLYTES NOS\VITAMINS
     Route: 065
     Dates: start: 20160924, end: 20161011
  193. FULCALIQ [Concomitant]
     Active Substance: AMINO ACIDS\CARBOHYDRATES\ELECTROLYTES NOS\VITAMINS
     Route: 065
     Dates: start: 20161213, end: 20161219
  194. MEDLENIK [Concomitant]
     Active Substance: CUPRIC SULFATE\FERRIC CHLORIDE\MANGANESE CHLORIDE\POTASSIUM IODIDE\ZINC SULFATE
     Route: 065
     Dates: start: 20161025, end: 20161031
  195. MEDLENIK [Concomitant]
     Active Substance: CUPRIC SULFATE\FERRIC CHLORIDE\MANGANESE CHLORIDE\POTASSIUM IODIDE\ZINC SULFATE
     Route: 065
     Dates: start: 20161129, end: 20161205
  196. MEDLENIK [Concomitant]
     Active Substance: CUPRIC SULFATE\FERRIC CHLORIDE\MANGANESE CHLORIDE\POTASSIUM IODIDE\ZINC SULFATE
     Route: 065
     Dates: start: 20161213, end: 20161219
  197. MEDLENIK [Concomitant]
     Active Substance: CUPRIC SULFATE\FERRIC CHLORIDE\MANGANESE CHLORIDE\POTASSIUM IODIDE\ZINC SULFATE
     Route: 065
     Dates: start: 20170124, end: 20170130
  198. INTRALIPOS [Concomitant]
     Active Substance: SOYBEAN OIL
     Route: 065
     Dates: start: 20160907
  199. INTRALIPOS [Concomitant]
     Active Substance: SOYBEAN OIL
     Route: 065
     Dates: start: 20161005
  200. INTRALIPOS [Concomitant]
     Active Substance: SOYBEAN OIL
     Route: 065
     Dates: start: 20161017
  201. INTRALIPOS [Concomitant]
     Active Substance: SOYBEAN OIL
     Route: 065
     Dates: start: 20161102
  202. INTRALIPOS [Concomitant]
     Active Substance: SOYBEAN OIL
     Route: 065
     Dates: start: 20161111
  203. INTRALIPOS [Concomitant]
     Active Substance: SOYBEAN OIL
     Route: 065
     Dates: start: 20161116
  204. INTRALIPOS [Concomitant]
     Active Substance: SOYBEAN OIL
     Route: 065
     Dates: start: 20161130
  205. INTRALIPOS [Concomitant]
     Active Substance: SOYBEAN OIL
     Route: 065
     Dates: start: 20161207
  206. INTRALIPOS [Concomitant]
     Active Substance: SOYBEAN OIL
     Route: 065
     Dates: start: 20170109
  207. INTRALIPOS [Concomitant]
     Active Substance: SOYBEAN OIL
     Route: 065
     Dates: start: 20170127
  208. INTRALIPOS [Concomitant]
     Active Substance: SOYBEAN OIL
     Route: 065
     Dates: start: 20170201
  209. INTRALIPOS [Concomitant]
     Active Substance: SOYBEAN OIL
     Route: 065
     Dates: start: 20170227
  210. FULCALIQ [Concomitant]
     Active Substance: AMINO ACIDS\CARBOHYDRATES\ELECTROLYTES NOS\VITAMINS
     Route: 065
     Dates: start: 20161220, end: 20161226
  211. SEISHOKU [Concomitant]
     Active Substance: SODIUM CHLORIDE
     Route: 065
     Dates: start: 20170116
  212. SEISHOKU [Concomitant]
     Active Substance: SODIUM CHLORIDE
     Route: 065
     Dates: start: 20170124, end: 20170130
  213. CEFMETAZOLE SODIUM [Suspect]
     Active Substance: CEFMETAZOLE SODIUM
     Route: 065
     Dates: start: 20150804, end: 20150813
  214. CEFMETAZOLE SODIUM [Suspect]
     Active Substance: CEFMETAZOLE SODIUM
     Route: 065
     Dates: start: 20161004, end: 20161008
  215. SERENACE [Concomitant]
     Active Substance: HALOPERIDOL
     Dosage: DOSE INCREASED
     Route: 050
     Dates: start: 20141119
  216. EXCEGRAN [Concomitant]
     Active Substance: ZONISAMIDE
     Indication: PRODUCT USED FOR UNKNOWN INDICATION
     Route: 050
     Dates: start: 20141113
  217. LANSOPRAZOLE-OD [Concomitant]
     Active Substance: LANSOPRAZOLE
     Indication: PRODUCT USED FOR UNKNOWN INDICATION
     Route: 050
     Dates: start: 20141113
  218. DAIKENCHUTO [Concomitant]
     Active Substance: HERBALS
     Indication: PRODUCT USED FOR UNKNOWN INDICATION
     Route: 050
     Dates: start: 20141113, end: 20161019
  219. HIRNAMIN [Concomitant]
     Active Substance: LEVOMEPROMAZINE
     Route: 050
     Dates: start: 20141117, end: 20150422
  220. HIRNAMIN [Concomitant]
     Active Substance: LEVOMEPROMAZINE
     Dosage: AS NECESSARY
     Route: 050
     Dates: start: 20160622
  221. HORIZON [Concomitant]
     Active Substance: DIAZEPAM
     Indication: PRODUCT USED FOR UNKNOWN INDICATION
     Route: 065
     Dates: start: 20160729
  222. HORIZON [Concomitant]
     Active Substance: DIAZEPAM
     Route: 065
     Dates: start: 20160921
  223. HORIZON [Concomitant]
     Active Substance: DIAZEPAM
     Route: 065
     Dates: start: 20170221
  224. PLEVITA [Concomitant]
     Route: 065
     Dates: start: 20170110, end: 20170115
  225. PENLEIV [Concomitant]
     Route: 065
     Dates: start: 20170103, end: 20170109
  226. FULCALIQ [Concomitant]
     Active Substance: AMINO ACIDS\CARBOHYDRATES\ELECTROLYTES NOS\VITAMINS
     Route: 065
     Dates: start: 20160913, end: 20160916
  227. SOLDEM 3 [Concomitant]
     Indication: NUTRITIONAL SUPPLEMENTATION
     Route: 065
     Dates: start: 20160820, end: 20160823
  228. MEDLENIK [Concomitant]
     Active Substance: CUPRIC SULFATE\FERRIC CHLORIDE\MANGANESE CHLORIDE\POTASSIUM IODIDE\ZINC SULFATE
     Route: 065
     Dates: start: 20161227, end: 20170102
  229. INTRALIPOS [Concomitant]
     Active Substance: SOYBEAN OIL
     Route: 065
     Dates: start: 20160909
  230. INTRALIPOS [Concomitant]
     Active Substance: SOYBEAN OIL
     Route: 065
     Dates: start: 20161003
  231. INTRALIPOS [Concomitant]
     Active Substance: SOYBEAN OIL
     Route: 065
     Dates: start: 20161007
  232. INTRALIPOS [Concomitant]
     Active Substance: SOYBEAN OIL
     Route: 065
     Dates: start: 20161216
  233. INTRALIPOS [Concomitant]
     Active Substance: SOYBEAN OIL
     Route: 065
     Dates: start: 20161221
  234. INTRALIPOS [Concomitant]
     Active Substance: SOYBEAN OIL
     Route: 065
     Dates: start: 20161223
  235. INTRALIPOS [Concomitant]
     Active Substance: SOYBEAN OIL
     Route: 065
     Dates: start: 20170116
  236. INTRALIPOS [Concomitant]
     Active Substance: SOYBEAN OIL
     Route: 065
     Dates: start: 20170203
  237. INTRALIPOS [Concomitant]
     Active Substance: SOYBEAN OIL
     Route: 065
     Dates: start: 20170210
  238. FULCALIQ [Concomitant]
     Active Substance: AMINO ACIDS\CARBOHYDRATES\ELECTROLYTES NOS\VITAMINS
     Route: 065
     Dates: start: 20161122, end: 20161128
  239. FULCALIQ [Concomitant]
     Active Substance: AMINO ACIDS\CARBOHYDRATES\ELECTROLYTES NOS\VITAMINS
     Route: 065
     Dates: start: 20161206, end: 20161212
  240. FULCALIQ [Concomitant]
     Active Substance: AMINO ACIDS\CARBOHYDRATES\ELECTROLYTES NOS\VITAMINS
     Route: 065
     Dates: start: 20170124, end: 20170130
  241. SEISHOKU [Concomitant]
     Active Substance: SODIUM CHLORIDE
     Route: 065
     Dates: start: 20161219, end: 20161226
  242. SEISHOKU [Concomitant]
     Active Substance: SODIUM CHLORIDE
     Route: 065
     Dates: start: 20170105
  243. SEISHOKU [Concomitant]
     Active Substance: SODIUM CHLORIDE
     Route: 065
     Dates: start: 20170214, end: 20170216
  244. PANTETHINE [Concomitant]
     Active Substance: PANTETHINE
     Route: 065
     Dates: start: 20170207, end: 20170213

REACTIONS (10)
  - Pneumonia aspiration [Recovering/Resolving]
  - Pleural effusion [Recovering/Resolving]
  - Insomnia [Not Recovered/Not Resolved]
  - Respiratory tract infection [Recovering/Resolving]
  - Death [Fatal]
  - Influenza [Not Recovered/Not Resolved]
  - Urinary tract infection [Recovering/Resolving]
  - Dyskinesia [Not Recovered/Not Resolved]
  - Alanine aminotransferase increased [Recovered/Resolved]
  - Blood prolactin increased [None]

NARRATIVE: CASE EVENT DATE: 20140927
